FAERS Safety Report 9000952 (Version 1)
Quarter: 2012Q4

REPORT INFORMATION
  Report Type: Spontaneous
  Country: US (occurrence: None)
  Receive Date: 20121226
  Receipt Date: 20121226
  Transmission Date: 20130627
  Serious: Yes (Other)
  Sender: FDA-Public Use
  Company Number: 2012SGN00575

PATIENT
  Sex: Male

DRUGS (1)
  1. ADCETRIS (BRENTUXIMAB VEDOTIN) INJECTION [Suspect]
     Indication: HODGKIN^S GRANULOMA

REACTIONS (3)
  - Sepsis [None]
  - Diarrhoea [None]
  - Nausea [None]
